FAERS Safety Report 12619340 (Version 1)
Quarter: 2016Q3

REPORT INFORMATION
  Report Type: Spontaneous
  Country: GB (occurrence: GB)
  Receive Date: 20160803
  Receipt Date: 20160803
  Transmission Date: 20161109
  Serious: Yes (Other)
  Sender: FDA-Public Use
  Company Number: GB-MYLANLABS-2016M1031176

PATIENT

DRUGS (2)
  1. KETOTIFEN [Concomitant]
     Active Substance: KETOTIFEN
     Dosage: 1 GTT, BID
     Dates: start: 20160720
  2. MONTELUKAST [Suspect]
     Active Substance: MONTELUKAST SODIUM
     Dosage: UNK
     Dates: start: 20160720

REACTIONS (1)
  - Episcleritis [Recovered/Resolved]

NARRATIVE: CASE EVENT DATE: 20160720
